FAERS Safety Report 6010854-3 (Version None)
Quarter: 2008Q4

REPORT INFORMATION
  Report Type: 
  Country: None (occurrence: None)
  Receive Date: 20081216
  Receipt Date: 20081201
  Transmission Date: 20090506
  Serious: Yes (Hospitalization)
  Sender: FDA-Public Use
  Company Number: KV200800895

PATIENT
  Age: 78 Year
  Sex: Female
  Weight: 55.3 kg

DRUGS (13)
  1. ISOSORBIDE MONONITRATE   LOW RELEASE TABLET, 60MG [Suspect]
     Indication: CARDIAC DISORDER
     Dosage: 60 MG, QD, ORAL
     Route: 048
     Dates: start: 19800101
  2. NEXIUM [Concomitant]
  3. WELCHOL [Concomitant]
  4. COREG [Concomitant]
  5. RANITIDINE [Concomitant]
  6. DIOVAN [Concomitant]
  7. SIMVASTATIN [Concomitant]
  8. ARTHOTEX (DICLOFENAC SODIUM, MISOPROSTOL) [Concomitant]
  9. ENABLEX (DARIFENACIN) [Concomitant]
  10. ASPIRIN [Concomitant]
  11. CALCIUM (CALCIUM) [Concomitant]
  12. VITAMIN B12 [Concomitant]
  13. POTASSIUM (POTASSIUM) [Concomitant]

REACTIONS (2)
  - CEREBROVASCULAR ACCIDENT [None]
  - PRODUCT QUALITY ISSUE [None]
